FAERS Safety Report 8817081 (Version 1)
Quarter: 2012Q4

REPORT INFORMATION
  Report Type: Spontaneous
  Country: US (occurrence: None)
  Receive Date: 20121003
  Receipt Date: 20121003
  Transmission Date: 20130627
  Serious: Yes (Other)
  Sender: FDA-Public Use
  Company Number: None

PATIENT
  Age: 64 Year
  Sex: Female
  Weight: 117.94 kg

DRUGS (6)
  1. DEXILANT [Suspect]
     Indication: GERD
     Dosage: 1 Daily po
     Route: 048
     Dates: start: 20120523, end: 20120715
  2. LEVOXYL [Concomitant]
  3. AVAPRO [Concomitant]
  4. JANUVEA [Concomitant]
  5. XYZAL [Concomitant]
  6. NASACORT [Concomitant]

REACTIONS (6)
  - Feeling abnormal [None]
  - Mental disorder [None]
  - Fatigue [None]
  - Feeling cold [None]
  - Activities of daily living impaired [None]
  - Impaired driving ability [None]
